FAERS Safety Report 5379061-1 (Version None)
Quarter: 2007Q3

REPORT INFORMATION
  Report Type: 
  Country: None (occurrence: None)
  Receive Date: 20070702
  Receipt Date: 20070619
  Transmission Date: 20080115
  Serious: Yes (Hospitalization)
  Sender: FDA-Public Use
  Company Number: T200700720

PATIENT
  Age: 79 Year
  Sex: Male
  Weight: 90.7 kg

DRUGS (10)
  1. ULTRA-TECHNEKOW [Suspect]
     Indication: CARDIAC STRESS TEST
     Dosage: 28 MCI, SINGLE, INTRAVENOUS
     Route: 042
     Dates: start: 20070305, end: 20070305
  2. THALLOUS CHLORIDE (TI 201) (THALLOUS CHLORIDE) (T1 201)) INJECTION [Suspect]
     Indication: CARDIAC STRESS TEST
     Dosage: 5 MCI, SINGLE, INTRAVENOUS
     Route: 042
     Dates: start: 20070305, end: 20070305
  3. GABAPENTIN [Concomitant]
  4. CARBAMAZEPINE [Concomitant]
  5. LEVOTHYROXINE SODIUM [Concomitant]
  6. ARICEPT [Concomitant]
  7. ADVAIR DISKUS 250/50 [Concomitant]
  8. NAMENDA (MEMATINE HYDROCHLORIDE) [Concomitant]
  9. CENTRUM SILVER (ASCORBIC ACID, CALCIUM, MINERALS NOS, RETINOL, TOCOPHE [Concomitant]
  10. VICODIN (HYDRCODONE BITARTRATE, PARACEMATOL), 5/500 [Concomitant]

REACTIONS (5)
  - FATIGUE [None]
  - PAIN [None]
  - PNEUMONIA [None]
  - TACHYCARDIA [None]
  - WEIGHT DECREASED [None]
